FAERS Safety Report 18942298 (Version 1)
Quarter: 2021Q1

REPORT INFORMATION
  Report Type: Spontaneous
  Country: US (occurrence: US)
  Receive Date: 20210225
  Receipt Date: 20210225
  Transmission Date: 20210420
  Serious: No
  Sender: FDA-Public Use
  Company Number: US-ELI_LILLY_AND_COMPANY-US202102009895

PATIENT
  Age: 43 Year
  Sex: Female

DRUGS (1)
  1. EMGALITY [Suspect]
     Active Substance: GALCANEZUMAB-GNLM
     Indication: MIGRAINE
     Dosage: 120 MG, UNKNOWN
     Route: 065

REACTIONS (6)
  - Confusional state [Unknown]
  - Migraine [Unknown]
  - Malaise [Unknown]
  - Illness [Unknown]
  - Euphoric mood [Unknown]
  - Dizziness [Unknown]

NARRATIVE: CASE EVENT DATE: 20210217
